FAERS Safety Report 8193156-9 (Version None)
Quarter: 2012Q1

REPORT INFORMATION
  Report Type: 
  Country: None (occurrence: None)
  Receive Date: 20120221
  Receipt Date: 20111111
  Transmission Date: 20120608
  Serious: No
  Sender: FDA-Public Use
  Company Number: 046379

PATIENT
  Age: 56 Year
  Sex: Male

DRUGS (2)
  1. PHENYTOIN [Concomitant]
  2. LACOSAMIDE [Suspect]
     Indication: STATUS EPILEPTICUS
     Dosage: SEE IMAGE
     Route: 042

REACTIONS (1)
  - NO ADVERSE EVENT [None]
